FAERS Safety Report 4487204-7 (Version None)
Quarter: 2004Q4

REPORT INFORMATION
  Report Type: 
  Country: None (occurrence: None)
  Receive Date: 20041022
  Receipt Date: 20041011
  Transmission Date: 20050328
  Serious: Yes (Other)
  Sender: FDA-Public Use
  Company Number: 2004238698GB

PATIENT

DRUGS (2)
  1. DOXORUBICIN HCL [Suspect]
     Dosage: CYCLIC
  2. URATE OXIDASE (URATE OXIDASE) [Suspect]

REACTIONS (1)
  - HAEMOLYTIC ANAEMIA [None]
